FAERS Safety Report 4320166-1 (Version None)
Quarter: 2004Q1

REPORT INFORMATION
  Report Type: 
  Country: None (occurrence: None)
  Receive Date: 20040317
  Receipt Date: 20040302
  Transmission Date: 20041129
  Serious: Yes (Life-Threatening, Hospitalization, Disabling, Other)
  Sender: FDA-Public Use
  Company Number: FR-SHR-03-018390

PATIENT
  Age: 31 Year
  Sex: Female
  Weight: 52 kg

DRUGS (1)
  1. MIRENA [Suspect]
     Indication: CONTRACEPTION
     Dosage: 20 UG, CONT, INTRA-UTERINE
     Route: 015
     Dates: start: 20031124, end: 20031127

REACTIONS (48)
  - ABDOMINAL WALL ABSCESS [None]
  - ABSCESS LIMB [None]
  - ACUTE PULMONARY OEDEMA [None]
  - ANAEMIA [None]
  - ANGIOPATHY [None]
  - ASCITES [None]
  - BETA HAEMOLYTIC STREPTOCOCCAL INFECTION [None]
  - BLOOD LACTIC ACID INCREASED [None]
  - BONE MARROW DISORDER [None]
  - CATHETER SITE INFECTION [None]
  - CHEST X-RAY ABNORMAL [None]
  - CYTOLYTIC HEPATITIS [None]
  - DEEP VEIN THROMBOSIS [None]
  - DISSEMINATED INTRAVASCULAR COAGULATION [None]
  - EMBOLISM [None]
  - ENTEROBACTER INFECTION [None]
  - FEMALE GENITAL-DIGESTIVE TRACT FISTULA [None]
  - GANGRENE [None]
  - HAEMODYNAMIC INSTABILITY [None]
  - HYPERTHERMIA [None]
  - ILIAC VEIN THROMBOSIS [None]
  - INFLAMMATION [None]
  - IUCD COMPLICATION [None]
  - LABORATORY TEST ABNORMAL [None]
  - LEG AMPUTATION [None]
  - LEUKOPENIA [None]
  - LUNG DISORDER [None]
  - NECROSIS [None]
  - PERITONITIS [None]
  - PHLEBOTHROMBOSIS [None]
  - PLEURAL DISORDER [None]
  - PLEURAL EFFUSION [None]
  - POST PROCEDURAL HAEMORRHAGE [None]
  - PULMONARY HYPERTENSION [None]
  - PULMONARY OEDEMA [None]
  - PURULENCE [None]
  - RENAL FAILURE [None]
  - RHABDOMYOLYSIS [None]
  - SALPINGITIS [None]
  - SEPTIC SHOCK [None]
  - SKIN LESION [None]
  - SKIN NECROSIS [None]
  - STAPHYLOCOCCAL SEPSIS [None]
  - TACHYCARDIA [None]
  - THROMBOCYTOPENIA [None]
  - URINARY TRACT INFECTION ENTEROCOCCAL [None]
  - UTERINE PERFORATION [None]
  - VAGINAL HAEMORRHAGE [None]
